FAERS Safety Report 12461753 (Version 2)
Quarter: 2016Q2

REPORT INFORMATION
  Report Type: Spontaneous
  Country: US (occurrence: US)
  Receive Date: 20160613
  Receipt Date: 20160616
  Transmission Date: 20160815
  Serious: Yes (Other)
  Sender: FDA-Public Use
  Company Number: US-PFIZER INC-2016293083

PATIENT
  Age: 66 Year
  Sex: Female

DRUGS (1)
  1. CELEBREX [Suspect]
     Active Substance: CELECOXIB
     Dosage: 200 MG, 2X/DAY

REACTIONS (6)
  - Fall [Unknown]
  - Pain [Not Recovered/Not Resolved]
  - Joint injury [Unknown]
  - Electrocardiogram abnormal [Unknown]
  - Malabsorption [Unknown]
  - Insomnia [Unknown]

NARRATIVE: CASE EVENT DATE: 201502
